FAERS Safety Report 9970096 (Version 1)
Quarter: 2014Q1

REPORT INFORMATION
  Report Type: Spontaneous
  Country: MU (occurrence: MU)
  Receive Date: 20140306
  Receipt Date: 20140306
  Transmission Date: 20141002
  Serious: No
  Sender: FDA-Public Use
  Company Number: MU-UCBSA-106366

PATIENT
  Sex: Female

DRUGS (1)
  1. XYZALL [Suspect]
     Dosage: 1DF=1 TABLET

REACTIONS (1)
  - Bronchospasm [Recovered/Resolved]
